FAERS Safety Report 10367470 (Version 1)
Quarter: 2014Q3

REPORT INFORMATION
  Report Type: Spontaneous
  Country: US (occurrence: None)
  Receive Date: 20140806
  Receipt Date: 20140806
  Transmission Date: 20150326
  Serious: Yes (Death)
  Sender: FDA-Public Use
  Company Number: None

PATIENT
  Age: 48 Year
  Sex: Female
  Weight: 68.04 kg

DRUGS (2)
  1. BRILINTA [Suspect]
     Active Substance: TICAGRELOR
     Indication: PROPHYLAXIS
     Dosage: ONCE DAILY?
     Route: 048
     Dates: start: 20140114, end: 20140214
  2. BRILINTA [Suspect]
     Active Substance: TICAGRELOR
     Indication: DEVICE OCCLUSION
     Dosage: ONCE DAILY?
     Route: 048
     Dates: start: 20140114, end: 20140214

REACTIONS (5)
  - Depressed mood [None]
  - Sudden death [None]
  - Economic problem [None]
  - Fatigue [None]
  - Oesophageal spasm [None]

NARRATIVE: CASE EVENT DATE: 20140414
